FAERS Safety Report 8578041-2 (Version None)
Quarter: 2012Q3

REPORT INFORMATION
  Report Type: 
  Country: None (occurrence: None)
  Receive Date: 20120808
  Receipt Date: 20120802
  Transmission Date: 20120928
  Serious: Yes (Hospitalization)
  Sender: FDA-Public Use
  Company Number: PHHO2012IL011418

PATIENT
  Sex: Female
  Weight: 52.5 kg

DRUGS (5)
  1. ZOMETA [Concomitant]
     Indication: BREAST CANCER METASTATIC
     Dosage: 4 MG/5 ML
     Dates: start: 20111009, end: 20120708
  2. AFINITOR [Suspect]
     Indication: BREAST CANCER METASTATIC
     Dosage: 10 MG/DAY
     Dates: start: 20111009, end: 20120729
  3. ADRENALIN IN OIL INJ [Concomitant]
     Indication: GASTRITIS
     Dosage: UNK
     Dates: start: 20120701
  4. NEXIUM [Concomitant]
     Dosage: 40 MG, UNK
     Dates: start: 20120601
  5. LETROZOLE [Suspect]
     Indication: BREAST CANCER METASTATIC
     Dosage: 2.5 MG/DAY
     Dates: start: 20111009, end: 20120729

REACTIONS (5)
  - ANAEMIA [None]
  - ANGIODYSPLASIA [None]
  - FATIGUE [None]
  - GASTROINTESTINAL ANGIODYSPLASIA HAEMORRHAGIC [None]
  - LYMPHOCYTE COUNT DECREASED [None]
